FAERS Safety Report 8482236-6 (Version None)
Quarter: 2012Q3

REPORT INFORMATION
  Report Type: 
  Country: None (occurrence: None)
  Receive Date: 20120702
  Receipt Date: 20120629
  Transmission Date: 20120928
  Serious: Yes (Other)
  Sender: FDA-Public Use
  Company Number: US-PFIZER INC-2012157061

PATIENT
  Age: 50 Year
  Sex: Female

DRUGS (1)
  1. PREMARIN [Suspect]
     Dosage: UNK
     Route: 048

REACTIONS (1)
  - BREAST CANCER FEMALE [None]
